FAERS Safety Report 24362623 (Version 1)
Quarter: 2024Q3

REPORT INFORMATION
  Report Type: Spontaneous
  Country: TH (occurrence: TH)
  Receive Date: 20240925
  Receipt Date: 20240925
  Transmission Date: 20241016
  Serious: Yes (Death)
  Sender: PFIZER
  Company Number: TH-PFIZER INC-PV202400125400

PATIENT

DRUGS (1)
  1. IBRANCE [Suspect]
     Active Substance: PALBOCICLIB
     Indication: Breast cancer
     Dosage: 100 MG, DAILY, EVERY 21 DAYS FOLLOWED BY 7 DAYS OF DRUG HOLIDAY
     Route: 048
     Dates: start: 20200610

REACTIONS (1)
  - Death [Fatal]
